FAERS Safety Report 7356536-7 (Version None)
Quarter: 2011Q1

REPORT INFORMATION
  Report Type: 
  Country: None (occurrence: None)
  Receive Date: 20110316
  Receipt Date: 20110302
  Transmission Date: 20110831
  Serious: Yes (Other)
  Sender: FDA-Public Use
  Company Number: PHRM2007FR02399

PATIENT
  Sex: Female

DRUGS (6)
  1. ZOMETA [Suspect]
     Indication: COMPLEX REGIONAL PAIN SYNDROME
     Dosage: UNK
     Dates: start: 20060330
  2. ZOMETA [Suspect]
     Dosage: UNK
     Dates: start: 20060901
  3. ZOMETA [Suspect]
     Dosage: UNK
     Dates: start: 20060602
  4. ZOMETA [Suspect]
     Dosage: UNK
     Dates: start: 20060630
  5. ZOMETA [Suspect]
     Dosage: UNK
     Dates: start: 20060725
  6. ZOMETA [Suspect]
     Dosage: UNK
     Dates: start: 20060428

REACTIONS (13)
  - GINGIVAL PAIN [None]
  - INFECTION [None]
  - PURULENT DISCHARGE [None]
  - DEVICE FAILURE [None]
  - BONE DENSITY DECREASED [None]
  - ORAL PAIN [None]
  - OSTEONECROSIS OF JAW [None]
  - JAW DISORDER [None]
  - DRUG INEFFECTIVE [None]
  - FOOT FRACTURE [None]
  - MANDIBULAR PROSTHESIS USER [None]
  - MAJOR DEPRESSION [None]
  - GINGIVAL INFECTION [None]
